FAERS Safety Report 15533435 (Version 13)
Quarter: 2020Q3

REPORT INFORMATION
  Report Type: Spontaneous
  Country: US (occurrence: US)
  Receive Date: 20181019
  Receipt Date: 20200715
  Transmission Date: 20201102
  Serious: No
  Sender: FDA-Public Use
  Company Number: US-PFIZER INC-2018425269

PATIENT
  Age: 41 Year
  Sex: Female

DRUGS (2)
  1. LYRICA [Suspect]
     Active Substance: PREGABALIN
     Indication: FIBROMYALGIA
     Dosage: 300 MG, 2X/DAY
  2. LYRICA [Suspect]
     Active Substance: PREGABALIN
     Indication: TENDONITIS
     Dosage: 300 MG, 2X/DAY
     Route: 048
     Dates: start: 20131107

REACTIONS (7)
  - Nervous system disorder [Unknown]
  - Pain [Unknown]
  - Insomnia [Unknown]
  - Nasal pruritus [Unknown]
  - Drug hypersensitivity [Unknown]
  - Off label use [Unknown]
  - Myalgia [Unknown]
